FAERS Safety Report 5587332-9 (Version None)
Quarter: 2008Q1

REPORT INFORMATION
  Report Type: 
  Country: None (occurrence: None)
  Receive Date: 20080110
  Receipt Date: 20080104
  Transmission Date: 20080703
  Serious: Yes (Other)
  Sender: FDA-Public Use
  Company Number: US-ELI_LILLY_AND_COMPANY-US200801001013

PATIENT
  Age: 68 Year
  Sex: Female

DRUGS (3)
  1. BYETTA [Suspect]
     Dosage: 5 UG, 2/D
     Route: 058
  2. BYETTA [Suspect]
     Dosage: 10 UG, 2/D
     Route: 058
  3. ANTI-DIABETICS [Concomitant]
     Dosage: UNK, UNKNOWN

REACTIONS (2)
  - DECREASED APPETITE [None]
  - HYPOGLYCAEMIC UNCONSCIOUSNESS [None]
